FAERS Safety Report 15935854 (Version 2)
Quarter: 2019Q1

REPORT INFORMATION
  Report Type: Report from Study
  Country: US (occurrence: US)
  Receive Date: 20190208
  Receipt Date: 20190301
  Transmission Date: 20190417
  Serious: No
  Sender: FDA-Public Use
  Company Number: US-SHIRE-US201904037

PATIENT
  Sex: Male

DRUGS (1)
  1. GATTEX [Suspect]
     Active Substance: TEDUGLUTIDE\WATER
     Indication: SHORT-BOWEL SYNDROME
     Dosage: 0.3710, 1X/DAY:QD
     Route: 058

REACTIONS (3)
  - Injection site nodule [Not Recovered/Not Resolved]
  - Nausea [Not Recovered/Not Resolved]
  - Injection site reaction [Not Recovered/Not Resolved]
